FAERS Safety Report 4941840-X (Version None)
Quarter: 2006Q1

REPORT INFORMATION
  Report Type: 
  Country: None (occurrence: None)
  Receive Date: 20060313
  Receipt Date: 20060301
  Transmission Date: 20060701
  Serious: Yes (Hospitalization)
  Sender: FDA-Public Use
  Company Number: CN-SANOFI-SYNTHELABO-A01200601589

PATIENT
  Age: 23 Year
  Sex: Female

DRUGS (1)
  1. STILNOX [Suspect]
     Indication: INSOMNIA
     Dosage: 10 MG
     Route: 048
     Dates: start: 20040410, end: 20040412

REACTIONS (4)
  - EPILEPSY [None]
  - HALLUCINATION [None]
  - LOSS OF CONSCIOUSNESS [None]
  - TIC [None]
